FAERS Safety Report 14815091 (Version 1)
Quarter: 2018Q2

REPORT INFORMATION
  Report Type: Spontaneous
  Country: JP (occurrence: JP)
  Receive Date: 20180426
  Receipt Date: 20180426
  Transmission Date: 20180711
  Serious: Yes (Other)
  Sender: FDA-Public Use
  Company Number: JP-009507513-1804JPN000450J

PATIENT
  Age: 63 Year
  Sex: Male

DRUGS (4)
  1. PRANLUKAST [Concomitant]
     Active Substance: PRANLUKAST
     Indication: RHINITIS ALLERGIC
     Dosage: 1 DF, UNK
     Route: 048
     Dates: end: 20180327
  2. PRANLUKAST [Concomitant]
     Active Substance: PRANLUKAST
     Dosage: 1 DF, BID
     Route: 048
     Dates: start: 20180328, end: 20180402
  3. TALION [Concomitant]
     Active Substance: BEPOTASTINE
     Indication: RHINITIS ALLERGIC
     Dosage: 1 DF, UNK
     Route: 048
     Dates: end: 20180327
  4. DESALEX TABLETS 5MG [Suspect]
     Active Substance: DESLORATADINE
     Indication: RHINITIS ALLERGIC
     Dosage: 5 MG, QD
     Route: 048
     Dates: start: 20180328, end: 20180402

REACTIONS (1)
  - Pneumonia [Recovered/Resolved]

NARRATIVE: CASE EVENT DATE: 20180329
